FAERS Safety Report 5501199-6 (Version None)
Quarter: 2007Q4

REPORT INFORMATION
  Report Type: 
  Country: None (occurrence: None)
  Receive Date: 20071029
  Receipt Date: 20071017
  Transmission Date: 20080405
  Serious: Yes (Hospitalization)
  Sender: FDA-Public Use
  Company Number: US-PFIZER INC-2007085511

PATIENT
  Sex: Female
  Weight: 45.454 kg

DRUGS (7)
  1. CHANTIX [Suspect]
     Indication: SMOKING CESSATION THERAPY
  2. ALL OTHER THERAPEUTIC PRODUCTS [Concomitant]
  3. GEODON [Concomitant]
  4. KLONOPIN [Concomitant]
  5. LISINOPRIL [Concomitant]
  6. FUROSEMIDE [Concomitant]
  7. POTASSIUM CHLORIDE [Concomitant]

REACTIONS (4)
  - DIARRHOEA [None]
  - HEADACHE [None]
  - NAUSEA [None]
  - PNEUMONIA [None]
